FAERS Safety Report 10874061 (Version 1)
Quarter: 2015Q1

REPORT INFORMATION
  Report Type: Spontaneous
  Country: US (occurrence: US)
  Receive Date: 20150227
  Receipt Date: 20150227
  Transmission Date: 20150721
  Serious: Yes (Other)
  Sender: FDA-Public Use
  Company Number: PHHY2015US020562

PATIENT
  Age: 44 Year
  Sex: Male

DRUGS (3)
  1. CYPROHEPTADINE. [Suspect]
     Active Substance: CYPROHEPTADINE
     Indication: PRODUCT USED FOR UNKNOWN INDICATION
     Route: 065
  2. DIAZEPAM. [Suspect]
     Active Substance: DIAZEPAM
     Indication: PRODUCT USED FOR UNKNOWN INDICATION
     Route: 042
  3. BACLOFEN. [Suspect]
     Active Substance: BACLOFEN
     Indication: MUSCLE SPASTICITY
     Route: 048

REACTIONS (8)
  - Shock [Unknown]
  - Myocardial infarction [Unknown]
  - Drug withdrawal syndrome [Unknown]
  - Hyperthermia [Unknown]
  - Renal failure [Unknown]
  - Ischaemia [Unknown]
  - Respiratory failure [Unknown]
  - Deep vein thrombosis [Unknown]
